FAERS Safety Report 12976630 (Version 1)
Quarter: 2016Q4

REPORT INFORMATION
  Report Type: Spontaneous
  Country: US (occurrence: US)
  Receive Date: 20161127
  Receipt Date: 20161127
  Transmission Date: 20170207
  Serious: Yes (Death)
  Sender: FDA-Public Use
  Company Number: US-ROCHE-1860188

PATIENT
  Age: 84 Year
  Sex: Female

DRUGS (6)
  1. ALLOPURINOL. [Concomitant]
     Active Substance: ALLOPURINOL
     Route: 065
  2. ARANESP [Concomitant]
     Active Substance: DARBEPOETIN ALFA
  3. CEPHALEXIN. [Concomitant]
     Active Substance: CEPHALEXIN
  4. EFUDEX [Concomitant]
     Active Substance: FLUOROURACIL
  5. FAMOTIDINE. [Concomitant]
     Active Substance: FAMOTIDINE
  6. ERIVEDGE [Suspect]
     Active Substance: VISMODEGIB
     Indication: BASAL CELL CARCINOMA
     Route: 048
     Dates: start: 20161028

REACTIONS (1)
  - Death [Fatal]

NARRATIVE: CASE EVENT DATE: 20161124
